FAERS Safety Report 23631101 (Version 2)
Quarter: 2024Q1

REPORT INFORMATION
  Report Type: Spontaneous
  Country: DE (occurrence: DE)
  Receive Date: 20240314
  Receipt Date: 20240315
  Transmission Date: 20240409
  Serious: Yes (Other)
  Sender: FDA-Public Use
  Company Number: DE-UCBSA-2024012209

PATIENT
  Age: 64 Year
  Sex: Male

DRUGS (2)
  1. KEPPRA [Suspect]
     Active Substance: LEVETIRACETAM
     Indication: Epilepsy
     Dosage: 1000 MILLIGRAM, UNK
     Dates: start: 202307
  2. STIVARGA [Suspect]
     Active Substance: REGORAFENIB
     Indication: Brain neoplasm
     Dosage: UNK
     Dates: start: 2024

REACTIONS (2)
  - Brain neoplasm [Recovered/Resolved]
  - Dyspnoea [Unknown]

NARRATIVE: CASE EVENT DATE: 20240101
